FAERS Safety Report 14226142 (Version 4)
Quarter: 2018Q1

REPORT INFORMATION
  Report Type: Spontaneous
  Country: US (occurrence: US)
  Receive Date: 20171127
  Receipt Date: 20180206
  Transmission Date: 20180508
  Serious: No
  Sender: FDA-Public Use
  Company Number: US-009507513-1711USA000199

PATIENT
  Age: 72 Year
  Sex: Female

DRUGS (4)
  1. SINGULAIR [Suspect]
     Active Substance: MONTELUKAST SODIUM
     Indication: BRONCHIAL HYPERREACTIVITY
     Dosage: 10 MG ONCE A DAY AT NIGHT
     Route: 048
     Dates: start: 2002
  2. NEXIUM [Concomitant]
     Active Substance: ESOMEPRAZOLE MAGNESIUM
     Dosage: UNK
  3. NASONEX [Concomitant]
     Active Substance: MOMETASONE FUROATE
     Dosage: UNK
  4. SINGULAIR [Suspect]
     Active Substance: MONTELUKAST SODIUM
     Indication: PULMONARY FIBROSIS

REACTIONS (8)
  - Productive cough [Recovered/Resolved]
  - Malaise [Recovered/Resolved]
  - Middle insomnia [Recovered/Resolved]
  - Product physical issue [Unknown]
  - Drug effect incomplete [Recovered/Resolved]
  - Counterfeit product administered [Unknown]
  - Product use in unapproved indication [Unknown]
  - Suspected counterfeit product [Unknown]

NARRATIVE: CASE EVENT DATE: 2002
